FAERS Safety Report 8031057-7 (Version None)
Quarter: 2011Q4

REPORT INFORMATION
  Report Type: 
  Country: None (occurrence: None)
  Receive Date: 20111202
  Receipt Date: 20090803
  Transmission Date: 20120403
  Serious: Yes (Hospitalization)
  Sender: FDA-Public Use
  Company Number: 2009SP017684

PATIENT
  Age: 25 Year
  Sex: Female
  Weight: 49.8957 kg

DRUGS (2)
  1. NUVARING [Suspect]
     Indication: CONTRACEPTION
     Dosage: 1 DFL QNL VAG
     Route: 067
     Dates: start: 20070316, end: 20070414
  2. VALTREX [Concomitant]

REACTIONS (2)
  - VAGINAL INFECTION [None]
  - DEEP VEIN THROMBOSIS [None]
